FAERS Safety Report 15956155 (Version 1)
Quarter: 2019Q1

REPORT INFORMATION
  Report Type: Spontaneous
  Country: US (occurrence: US)
  Receive Date: 20190213
  Receipt Date: 20190213
  Transmission Date: 20190417
  Serious: Yes (Other)
  Sender: FDA-Public Use
  Company Number: US-TEVA-2019-US-1008295

PATIENT
  Age: 53 Year
  Sex: Male
  Weight: 92.53 kg

DRUGS (4)
  1. SERTRALINE HCL [Suspect]
     Active Substance: SERTRALINE HYDROCHLORIDE
     Indication: DEPRESSION
     Dosage: 25MG ONCE A DAY FOR 7 DAYS THEN INCREASED TO TWICE A DAY AFTER THAT
     Route: 065
     Dates: start: 20170830
  2. SERTRALINE HCL [Suspect]
     Active Substance: SERTRALINE HYDROCHLORIDE
     Dosage: 25MG ONCE A DAY FOR 7 DAYS THEN INCREASED TO TWICE A DAY AFTER THAT
     Route: 065
     Dates: end: 201709
  3. PROPRANOLOL [Suspect]
     Active Substance: PROPRANOLOL HYDROCHLORIDE
     Indication: HEART RATE DECREASED
     Route: 048
  4. NAPROXEN TEVA TABLET MSR 250MG [Suspect]
     Active Substance: NAPROXEN
     Indication: TENDONITIS
     Route: 065

REACTIONS (23)
  - Blood pressure increased [Unknown]
  - Loss of dreaming [Not Recovered/Not Resolved]
  - Drug hypersensitivity [Not Recovered/Not Resolved]
  - Depression [Unknown]
  - Nausea [Recovering/Resolving]
  - Dyspepsia [Not Recovered/Not Resolved]
  - Skin burning sensation [Not Recovered/Not Resolved]
  - Muscle twitching [Not Recovered/Not Resolved]
  - Heart rate increased [Unknown]
  - Chest pain [Recovering/Resolving]
  - Road traffic accident [Unknown]
  - Arthralgia [Not Recovered/Not Resolved]
  - Palpitations [Not Recovered/Not Resolved]
  - Tremor [Not Recovered/Not Resolved]
  - Insomnia [Not Recovered/Not Resolved]
  - Coordination abnormal [Unknown]
  - Musculoskeletal chest pain [Unknown]
  - Pain [Not Recovered/Not Resolved]
  - Libido decreased [Not Recovered/Not Resolved]
  - Cardiac flutter [Not Recovered/Not Resolved]
  - Anxiety [Unknown]
  - Contusion [Unknown]
  - Dyspnoea [Recovered/Resolved]

NARRATIVE: CASE EVENT DATE: 201708
